FAERS Safety Report 10389236 (Version 1)
Quarter: 2014Q3

REPORT INFORMATION
  Report Type: Spontaneous
  Country: US (occurrence: US)
  Receive Date: 20140818
  Receipt Date: 20140818
  Transmission Date: 20150326
  Serious: No
  Sender: FDA-Public Use
  Company Number: US-009507513-1408USA003933

PATIENT
  Age: 55 Year
  Sex: Female

DRUGS (9)
  1. COPEGUS [Suspect]
     Active Substance: RIBAVIRIN
     Dosage: 200 MG, BID
     Route: 048
  2. VITAMIN D [Concomitant]
     Active Substance: CHOLECALCIFEROL
  3. MECLIZINE [Concomitant]
     Active Substance: MECLIZINE\MECLIZINE HYDROCHLORIDE
     Dosage: 25 MG DAILY, PRN
     Route: 048
  4. NEOPOLYDEX [Concomitant]
     Dosage: 1 GTT, 4 IN 1 D
  5. FLUOCINOLONE ACETONIDE. [Concomitant]
     Active Substance: FLUOCINOLONE ACETONIDE
     Dosage: THIN LAYER TO AFFECTED AREAS, PRN, 2 IN 1 D
  6. PEGASYS [Suspect]
     Active Substance: PEGINTERFERON ALFA-2A
     Indication: CHRONIC HEPATITIS C
     Dosage: 180 MICROGRAM, QW
     Route: 058
  7. COPEGUS [Suspect]
     Active Substance: RIBAVIRIN
     Indication: CHRONIC HEPATITIS C
     Dosage: 400 MG IN MORNING AND 600 MG IN EVENING
     Route: 048
  8. VICTRELIS [Suspect]
     Active Substance: BOCEPREVIR
     Indication: CHRONIC HEPATITIS C
     Dosage: 4 DF, TID
     Route: 048
     Dates: start: 20120410
  9. COPEGUS [Suspect]
     Active Substance: RIBAVIRIN
     Dosage: 400 MG IN MORNING AND 200 MG IN EVENING
     Route: 048

REACTIONS (14)
  - Visual impairment [Unknown]
  - Burning sensation [Unknown]
  - Insomnia [Unknown]
  - Vitreous detachment [Unknown]
  - Eczema [Unknown]
  - Pain in extremity [Unknown]
  - Ocular hyperaemia [Unknown]
  - Anaemia [Unknown]
  - Paraesthesia [Unknown]
  - Vertigo [Recovering/Resolving]
  - Tinnitus [Unknown]
  - Eye infection [Unknown]
  - Peripheral swelling [Unknown]
  - Eye disorder [Recovering/Resolving]

NARRATIVE: CASE EVENT DATE: 201208
